FAERS Safety Report 7396572-8 (Version None)
Quarter: 2011Q2

REPORT INFORMATION
  Report Type: 
  Country: None (occurrence: None)
  Receive Date: 20110406
  Receipt Date: 20110323
  Transmission Date: 20111010
  Serious: Yes (Hospitalization)
  Sender: FDA-Public Use
  Company Number: PHHY2011US23901

PATIENT
  Sex: Male

DRUGS (1)
  1. EXJADE [Suspect]
     Dosage: 1500 MG, DAILY
     Route: 048

REACTIONS (4)
  - INFLUENZA [None]
  - DEHYDRATION [None]
  - DIARRHOEA [None]
  - RENAL DISORDER [None]
